FAERS Safety Report 4315973-5 (Version None)
Quarter: 2004Q1

REPORT INFORMATION
  Report Type: 
  Country: None (occurrence: None)
  Receive Date: 20040310
  Receipt Date: 20020520
  Transmission Date: 20041129
  Serious: Yes (Hospitalization)
  Sender: FDA-Public Use
  Company Number: 30018714-02A10G41-1

PATIENT
  Age: 65 Year
  Sex: Female
  Weight: 58 kg

DRUGS (14)
  1. EXTRANEAL [Suspect]
     Indication: DIALYSIS
     Dosage: 7.5% ICODEXTRIN 2 L; QD
     Dates: start: 20020315, end: 20020403
  2. EXTRANEAL [Suspect]
     Indication: FLUID OVERLOAD
     Dosage: 7.5% ICODEXTRIN 2 L; QD
     Dates: start: 20020315, end: 20020403
  3. AMLODIPINE [Concomitant]
  4. ASPIRIN [Concomitant]
  5. ATENOLOL [Concomitant]
  6. CALCHICHEW (CALCIUM CARBONATE) [Concomitant]
  7. DIPYRIDAMOLE C [Concomitant]
  8. SODIUM DUCOSATE [Concomitant]
  9. CLONAZEPAM [Concomitant]
  10. QUININE SULPHATE [Concomitant]
  11. SIMVASTATIN [Concomitant]
  12. LISINOPRIL [Concomitant]
  13. DIANEAL (GLUOSE/SODIUM LACTATE/SODIUM CHLORIDE/MAGNESIUM CHLORIDE ANHY [Concomitant]
  14. NUTRINEAL [Concomitant]

REACTIONS (3)
  - ABDOMINAL PAIN [None]
  - CATHETER RELATED COMPLICATION [None]
  - CONSTIPATION [None]
